FAERS Safety Report 8447952-0 (Version None)
Quarter: 2012Q2

REPORT INFORMATION
  Report Type: 
  Country: None (occurrence: None)
  Receive Date: 20120612
  Receipt Date: 20120530
  Transmission Date: 20120825
  Serious: Yes (Disabling, Other)
  Sender: FDA-Public Use
  Company Number: 2012P1023242

PATIENT
  Age: 21 Year
  Sex: Female
  Weight: 70.3075 kg

DRUGS (1)
  1. PHENERGAN [Suspect]
     Indication: LABOUR PAIN
     Dosage: 10 MG, IV
     Route: 042
     Dates: start: 19990509, end: 19990509

REACTIONS (4)
  - HYPERSENSITIVITY [None]
  - IMPAIRED WORK ABILITY [None]
  - CONVULSION [None]
  - CRANIOCEREBRAL INJURY [None]
